FAERS Safety Report 5573632-5 (Version None)
Quarter: 2007Q4

REPORT INFORMATION
  Report Type: 
  Country: None (occurrence: None)
  Receive Date: 20071226
  Receipt Date: 20071221
  Transmission Date: 20080405
  Serious: Yes (Hospitalization)
  Sender: FDA-Public Use
  Company Number: NL-WYE-H01866407

PATIENT
  Age: 44 Year
  Sex: Male

DRUGS (1)
  1. CORDARONE [Suspect]
     Route: 058

REACTIONS (1)
  - INCORRECT ROUTE OF DRUG ADMINISTRATION [None]
